FAERS Safety Report 12037245 (Version 2)
Quarter: 2016Q1

REPORT INFORMATION
  Report Type: Report from Study
  Country: US (occurrence: US)
  Receive Date: 20160208
  Receipt Date: 20160225
  Transmission Date: 20160526
  Serious: Yes (Death, Hospitalization, Other)
  Sender: FDA-Public Use
  Company Number: US-AMGEN-USASL2016013859

PATIENT
  Age: 61 Year
  Sex: Male
  Weight: 90.7 kg

DRUGS (10)
  1. FIRMAGON [Concomitant]
     Active Substance: DEGARELIX ACETATE
     Dosage: 240 MG, UNK
     Route: 058
     Dates: start: 20140606, end: 20150704
  2. CALCIUM GLUCONATE. [Concomitant]
     Active Substance: CALCIUM GLUCONATE
     Dosage: UNK
     Dates: start: 20150619, end: 20151116
  3. XGEVA [Suspect]
     Active Substance: DENOSUMAB
     Indication: PRODUCT USED FOR UNKNOWN INDICATION
     Dosage: 120 MG, Q 28 D
     Route: 058
     Dates: start: 20140602
  4. NEULASTA [Suspect]
     Active Substance: PEGFILGRASTIM
     Indication: PROPHYLAXIS
     Dosage: UNK
     Route: 058
  5. JEVTANA [Concomitant]
     Active Substance: CABAZITAXEL
     Dosage: 25 MG/M2, Q 21 D
     Route: 048
     Dates: start: 20150203, end: 20151110
  6. XTANDI [Concomitant]
     Active Substance: ENZALUTAMIDE
     Dosage: 160 MG, QD 28D CYCLE
     Route: 048
     Dates: start: 20141216, end: 20150113
  7. TRELSTAR [Concomitant]
     Active Substance: TRIPTORELIN PAMOATE
     Dosage: 11.25 MG, Q 3 MO/ X6
     Dates: start: 20140707, end: 20140929
  8. TAXOTERE [Concomitant]
     Active Substance: DOCETAXEL
     Dosage: 50 MG/M2, 15 Q 28 D
     Route: 048
     Dates: start: 20140701, end: 20141111
  9. LUPRON [Concomitant]
     Active Substance: LEUPROLIDE ACETATE
     Dosage: 22.5 MG/X6
     Dates: start: 20141124, end: 20151211
  10. XOFIGO [Concomitant]
     Active Substance: RADIUM RA-223 DICHLORIDE
     Dosage: UNK
     Dates: start: 20140617, end: 20140626

REACTIONS (4)
  - Agranulocytosis [Unknown]
  - Dehydration [Unknown]
  - Death [Fatal]
  - Anaemia [Unknown]

NARRATIVE: CASE EVENT DATE: 20150324
